FAERS Safety Report 8894768 (Version 1)
Quarter: 2012Q4

REPORT INFORMATION
  Report Type: 
  Country: JP (occurrence: JP)
  Receive Date: 20121108
  Receipt Date: 20121108
  Transmission Date: 20130627
  Serious: Yes (Death)
  Sender: FDA-Public Use
  Company Number: JP-AMGEN-JPNCT2012071562

PATIENT
  Age: 69 Year
  Sex: Male

DRUGS (10)
  1. DARBEPOETIN ALFA [Suspect]
     Indication: NEPHROGENIC ANAEMIA
     Dosage: 60 mug, q4wk
     Route: 058
     Dates: start: 20111027, end: 20120119
  2. DARBEPOETIN ALFA [Suspect]
     Dosage: 120 mug, qd
     Route: 058
     Dates: start: 20120216, end: 20120216
  3. DIOVAN [Concomitant]
     Dosage: UNK
     Route: 048
  4. NORVASC [Concomitant]
     Dosage: UNK
     Route: 048
  5. CARDENALIN [Concomitant]
     Dosage: UNK
     Route: 048
  6. ZYLORIC [Concomitant]
     Dosage: UNK
     Route: 048
  7. FLUITRAN [Concomitant]
     Indication: GLOMERULONEPHRITIS CHRONIC
     Dosage: UNK
     Route: 048
  8. LIPITOR [Concomitant]
     Dosage: UNK
     Route: 048
  9. PREDONINE [Concomitant]
     Indication: GLOMERULONEPHRITIS CHRONIC
     Dosage: UNK
     Route: 048
  10. SODIUM BICARBONATE [Concomitant]
     Indication: GLOMERULONEPHRITIS CHRONIC
     Dosage: UNK
     Route: 048

REACTIONS (1)
  - Aortic dissection [Fatal]
